FAERS Safety Report 6945582-0 (Version None)
Quarter: 2010Q3

REPORT INFORMATION
  Report Type: 
  Country: None (occurrence: None)
  Receive Date: 20100827
  Receipt Date: 20100727
  Transmission Date: 20110219
  Serious: No
  Sender: FDA-Public Use
  Company Number: US-BAYER-201029117NA

PATIENT
  Age: 65 Year
  Sex: Female
  Weight: 77 kg

DRUGS (4)
  1. ULTRAVIST 370 [Suspect]
     Indication: COMPUTERISED TOMOGRAM THORAX
     Dosage: TOTAL DAILY DOSE: 100 ML  UNIT DOSE: 500 ML
     Route: 042
     Dates: start: 20100727, end: 20100727
  2. XALATAN [Concomitant]
  3. LANSOPRAZOLE [Concomitant]
  4. PRAVASTATIN [Concomitant]

REACTIONS (3)
  - ERYTHEMA [None]
  - INJECTION SITE ERYTHEMA [None]
  - PRURITUS [None]
